FAERS Safety Report 6812783-1 (Version None)
Quarter: 2010Q3

REPORT INFORMATION
  Report Type: 
  Country: None (occurrence: None)
  Receive Date: 20100701
  Receipt Date: 20100629
  Transmission Date: 20110219
  Serious: Yes (Hospitalization)
  Sender: FDA-Public Use
  Company Number: B0660950A

PATIENT
  Sex: Male
  Weight: 70.6 kg

DRUGS (4)
  1. FLUTICASONE FUROATE [Suspect]
     Indication: ASTHMA
     Dosage: 100MCG PER DAY
     Route: 055
     Dates: start: 20100330, end: 20100426
  2. DICLOFENAC SODIUM [Concomitant]
     Indication: PAIN
     Dosage: 75MG TWICE PER DAY
     Route: 048
     Dates: start: 20100610
  3. OMEPRAZOLE [Concomitant]
     Indication: PROPHYLAXIS
     Dosage: 20MG PER DAY
     Route: 048
     Dates: start: 20100610
  4. ADCAL [Concomitant]
     Dosage: 2TAB TWICE PER DAY
     Route: 048
     Dates: start: 20100615

REACTIONS (11)
  - ARTHRALGIA [None]
  - FATIGUE [None]
  - GAIT DISTURBANCE [None]
  - HISTIOCYTIC NECROTISING LYMPHADENITIS [None]
  - HYPERHIDROSIS [None]
  - INSOMNIA [None]
  - MOUTH ULCERATION [None]
  - PYREXIA [None]
  - RHINORRHOEA [None]
  - THIRST [None]
  - WEIGHT DECREASED [None]
